FAERS Safety Report 12807274 (Version 1)
Quarter: 2016Q4

REPORT INFORMATION
  Report Type: Spontaneous
  Country: US (occurrence: US)
  Receive Date: 20161004
  Receipt Date: 20161004
  Transmission Date: 20170207
  Serious: Yes (Disabling)
  Sender: FDA-Public Use
  Company Number: None

PATIENT
  Age: 2 Year
  Sex: Male
  Weight: 11.25 kg

DRUGS (1)
  1. BABY TEETHING (HYLAND HOMEOPATHIC) [Suspect]
     Active Substance: HOMEOPATHICS
     Indication: TEETHING
     Route: 048
     Dates: start: 20151201, end: 20160307

REACTIONS (5)
  - Cyst [None]
  - Head banging [None]
  - Screaming [None]
  - Seizure [None]
  - Intentional self-injury [None]

NARRATIVE: CASE EVENT DATE: 20160314
